FAERS Safety Report 16063233 (Version 1)
Quarter: 2019Q1

REPORT INFORMATION
  Report Type: Spontaneous
  Country: NL (occurrence: NL)
  Receive Date: 20190312
  Receipt Date: 20190312
  Transmission Date: 20190418
  Serious: Yes (Hospitalization)
  Sender: FDA-Public Use
  Company Number: NL-MYLANLABS-2019M1022019

PATIENT
  Age: 75 Year
  Sex: Male
  Weight: 68 kg

DRUGS (11)
  1. LAMOTRIGINE. [Suspect]
     Active Substance: LAMOTRIGINE
     Indication: EPILEPSY
     Dosage: 25 MILLIGRAM, QD (1 DD 25 MG)
     Route: 048
     Dates: start: 20180705, end: 20180719
  2. SALBUTAMOL [Concomitant]
     Active Substance: ALBUTEROL
     Dosage: 3 X PER DAG 1 DOSIS
     Route: 055
  3. CEFUROXIME. [Concomitant]
     Active Substance: CEFUROXIME
     Dosage: 3 X PER DAG 1500 MG
  4. COLECALCIFEROL [Concomitant]
     Active Substance: CHOLECALCIFEROL
     Dosage: 1 X PER DAG 1 STUK
     Route: 048
  5. LANETTE WAX [Concomitant]
     Dosage: UNK
     Route: 003
  6. RIVAROXABAN [Concomitant]
     Active Substance: RIVAROXABAN
     Dosage: 1 X PER DAG 1 STUK
     Route: 048
  7. LORAZEPAM. [Concomitant]
     Active Substance: LORAZEPAM
     Dosage: ZO NODIG, 1 X PER DAG 1 STUK ZO NODIG HERHALEN TOT RUSTIG
     Route: 048
  8. NICOTINE. [Concomitant]
     Active Substance: NICOTINE
     Dosage: 1 X PER DAG 1 STUK
  9. CLEMASTINE [Concomitant]
     Active Substance: CLEMASTINE
     Dosage: 2 X PER DAG 1 STUK
  10. VALPROIC ACID. [Concomitant]
     Active Substance: VALPROIC ACID
     Dosage: 3 X PER DAG 1 STUK
     Route: 048
  11. PARACETAMOL [Concomitant]
     Active Substance: ACETAMINOPHEN
     Dosage: 4 X PER DAG 1 STUK
     Route: 048

REACTIONS (5)
  - Drug reaction with eosinophilia and systemic symptoms [Recovered/Resolved]
  - Rash [Recovered/Resolved]
  - Blood pressure decreased [Recovered/Resolved]
  - Eosinophilia [Recovered/Resolved]
  - Face oedema [Recovered/Resolved]

NARRATIVE: CASE EVENT DATE: 20180718
